FAERS Safety Report 15775115 (Version 1)
Quarter: 2018Q4

REPORT INFORMATION
  Report Type: Spontaneous
  Country: US (occurrence: US)
  Receive Date: 20181231
  Receipt Date: 20181231
  Transmission Date: 20190205
  Serious: No
  Sender: FDA-Public Use
  Company Number: US-DRREDDYS-USA/USA/18/0105061

PATIENT
  Age: 83 Year
  Sex: Male
  Weight: 110 kg

DRUGS (2)
  1. NICOTINE. [Suspect]
     Active Substance: NICOTINE
     Indication: SMOKING CESSATION THERAPY
     Route: 065
  2. NICOTINE. [Suspect]
     Active Substance: NICOTINE
     Route: 065

REACTIONS (3)
  - Inappropriate schedule of product administration [Unknown]
  - Nicotine dependence [Not Recovered/Not Resolved]
  - Drug ineffective [Unknown]
